FAERS Safety Report 21699420 (Version 2)
Quarter: 2023Q1

REPORT INFORMATION
  Report Type: Report from Study
  Country: GB (occurrence: GB)
  Receive Date: 20221208
  Receipt Date: 20230110
  Transmission Date: 20230418
  Serious: Yes (Hospitalization, Disabling)
  Sender: FDA-Public Use
  Company Number: GB-BAYER-2022P026018

PATIENT
  Age: 93 Year
  Sex: Female

DRUGS (10)
  1. EYLEA [Suspect]
     Active Substance: AFLIBERCEPT
     Indication: Neovascular age-related macular degeneration
     Dosage: UNK, SOLUTION FOR INJECTION, 40MG/ML
     Dates: start: 20191018
  2. EYLEA [Suspect]
     Active Substance: AFLIBERCEPT
     Dosage: 50 UL, SOLUTION FOR INJECTION
     Dates: start: 20191119, end: 20191119
  3. EYLEA [Suspect]
     Active Substance: AFLIBERCEPT
     Dosage: 50 UL, SOLUTION FOR INJECTION
     Dates: start: 20191230, end: 20191230
  4. EYLEA [Suspect]
     Active Substance: AFLIBERCEPT
     Dosage: 50 UL, SOLUTION FOR INJECTION
     Dates: start: 20200203, end: 20200203
  5. EYLEA [Suspect]
     Active Substance: AFLIBERCEPT
     Dosage: 50 UL, SOLUTION FOR INJECTION
     Dates: start: 20200310, end: 20200310
  6. EYLEA [Suspect]
     Active Substance: AFLIBERCEPT
     Dosage: 50 UL, SOLUTION FOR INJECTION
     Dates: start: 20200629, end: 20200629
  7. EYLEA [Suspect]
     Active Substance: AFLIBERCEPT
     Dosage: 50 UL, SOLUTION FOR INJECTION
     Dates: start: 20200907, end: 20200907
  8. EYLEA [Suspect]
     Active Substance: AFLIBERCEPT
     Dosage: 50 UL, SOLUTION FOR INJECTION
     Dates: start: 20201014, end: 20201014
  9. EYLEA [Suspect]
     Active Substance: AFLIBERCEPT
     Dosage: 50 UL, SOLUTION FOR INJECTION
     Dates: start: 20201124, end: 20201124
  10. ALENDRONIC ACID [Concomitant]
     Active Substance: ALENDRONIC ACID
     Indication: Osteoporosis
     Dates: start: 20200830

REACTIONS (2)
  - Glare [Not Recovered/Not Resolved]
  - Fall [Recovered/Resolved]

NARRATIVE: CASE EVENT DATE: 20200529
